FAERS Safety Report 6184529-4 (Version None)
Quarter: 2009Q2

REPORT INFORMATION
  Report Type: 
  Country: None (occurrence: None)
  Receive Date: 20090508
  Receipt Date: 20090428
  Transmission Date: 20091009
  Serious: Yes (Disabling, Other)
  Sender: FDA-Public Use
  Company Number: US-ABBOTT-09P-163-0570503-00

PATIENT
  Sex: Female
  Weight: 74.456 kg

DRUGS (3)
  1. LUPRON DEPOT [Suspect]
     Indication: PRECOCIOUS PUBERTY
     Dosage: GIVEN ADULT DOSE FOR EVERY THREE MONTH DOSING.
     Dates: start: 20060501, end: 20070201
  2. PHENERGAN [Concomitant]
     Indication: PAIN
     Dates: start: 20070101
  3. STRATTERA [Concomitant]
     Indication: ATTENTION DEFICIT/HYPERACTIVITY DISORDER

REACTIONS (8)
  - ABASIA [None]
  - BLOOD CALCIUM DECREASED [None]
  - INSOMNIA [None]
  - MIGRAINE [None]
  - OSTEOPENIA [None]
  - PAIN [None]
  - SCOLIOSIS [None]
  - SENSORY LOSS [None]
